FAERS Safety Report 18061295 (Version 1)
Quarter: 2020Q3

REPORT INFORMATION
  Report Type: Spontaneous
  Country: US (occurrence: US)
  Receive Date: 20200723
  Receipt Date: 20200723
  Transmission Date: 20201103
  Serious: Yes (Other)
  Sender: FDA-Public Use
  Company Number: US-PURDUE-USA-2020-0158496

PATIENT
  Sex: Male

DRUGS (2)
  1. OXYCONTIN [Suspect]
     Active Substance: OXYCODONE HYDROCHLORIDE
     Dosage: LOWER DOSE
     Route: 048
  2. OXYCONTIN [Suspect]
     Active Substance: OXYCODONE HYDROCHLORIDE
     Indication: PRODUCT USED FOR UNKNOWN INDICATION
     Dosage: 80 MG, TID
     Route: 048

REACTIONS (10)
  - Clavicle fracture [Unknown]
  - Cardiac disorder [Unknown]
  - Fall [Unknown]
  - Lower limb fracture [Unknown]
  - Cognitive disorder [Unknown]
  - Visual impairment [Unknown]
  - Amnesia [Unknown]
  - Hand fracture [Unknown]
  - Withdrawal syndrome [Unknown]
  - Weight decreased [Unknown]
